FAERS Safety Report 5487011-2 (Version None)
Quarter: 2007Q3

REPORT INFORMATION
  Report Type: 
  Country: None (occurrence: None)
  Receive Date: 20070925
  Receipt Date: 20070806
  Transmission Date: 20080115
  Serious: No
  Sender: FDA-Public Use
  Company Number: 2007US001256

PATIENT
  Age: 75 Year
  Sex: Female

DRUGS (8)
  1. VESICARE [Suspect]
     Indication: HYPERTONIC BLADDER
     Dosage: 5 MG, UID/QD, ORAL
     Route: 048
     Dates: start: 20070517, end: 20070520
  2. HYZAAR [Concomitant]
  3. WARFARIN SODIUM [Concomitant]
  4. FOSAMAX [Concomitant]
  5. LYRICA [Concomitant]
  6. ZOCOR [Concomitant]
  7. DIGOXIN [Concomitant]
  8. ESTRACE VAGINAL (ESTRADIOL) [Concomitant]

REACTIONS (3)
  - FATIGUE [None]
  - SOMNOLENCE [None]
  - VISION BLURRED [None]
